FAERS Safety Report 9281628 (Version 1)
Quarter: 2013Q2

REPORT INFORMATION
  Report Type: Report from Study
  Country: VE (occurrence: VE)
  Receive Date: 20130509
  Receipt Date: 20130509
  Transmission Date: 20140414
  Serious: Yes (Other)
  Sender: FDA-Public Use
  Company Number: VE-ABBOTT-13P-178-1087288-00

PATIENT
  Age: 61 Year
  Sex: Male
  Weight: 85 kg

DRUGS (7)
  1. HUMIRA [Suspect]
     Indication: PSORIASIS
     Route: 058
     Dates: start: 20120213, end: 201211
  2. HUMIRA [Suspect]
     Dates: end: 201301
  3. HUMIRA [Suspect]
     Route: 058
     Dates: start: 201302
  4. DIOVAN [Concomitant]
     Indication: HYPERTENSION
     Route: 048
  5. DILATREND [Concomitant]
     Indication: HYPERTENSION
     Route: 048
  6. ALDACTONE [Concomitant]
     Indication: HYPERTENSION
     Route: 048
  7. PLAVIX [Concomitant]
     Indication: HYPERTENSION
     Route: 048

REACTIONS (3)
  - Blood urea increased [Recovering/Resolving]
  - Blood creatinine increased [Recovering/Resolving]
  - Haemoglobin decreased [Recovering/Resolving]
